FAERS Safety Report 8311556-0 (Version None)
Quarter: 2012Q2

REPORT INFORMATION
  Report Type: 
  Country: None (occurrence: None)
  Receive Date: 20120425
  Receipt Date: 20120417
  Transmission Date: 20120825
  Serious: Yes (Other)
  Sender: FDA-Public Use
  Company Number: RU-JNJFOC-20120408768

PATIENT
  Sex: Female

DRUGS (24)
  1. DOXORUBICIN HCL [Suspect]
     Indication: BREAST CANCER
     Dosage: CYCLE 8
     Route: 042
  2. DOXORUBICIN HCL [Suspect]
     Dosage: CYCLE 6
     Route: 042
  3. DOCETAXEL [Suspect]
     Dosage: CYCLE 2
     Route: 065
  4. PACLITAXEL [Suspect]
     Indication: BREAST CANCER
     Dosage: CYCLE 8
     Route: 065
  5. PACLITAXEL [Suspect]
     Dosage: CYCLE 2
     Route: 065
  6. DOCETAXEL [Suspect]
     Dosage: CYCLE 4
     Route: 065
  7. DOXORUBICIN HCL [Suspect]
     Dosage: CYCLE 4
     Route: 042
  8. DOXORUBICIN HCL [Suspect]
     Dosage: CYCLE 3
     Route: 042
  9. DOCETAXEL [Suspect]
     Indication: BREAST CANCER
     Dosage: CYCLE 1
     Route: 065
  10. DOXORUBICIN HCL [Suspect]
     Dosage: CYCLE 5
     Route: 042
  11. DOXORUBICIN HCL [Suspect]
     Dosage: CYCLE 2
     Route: 042
  12. DOXORUBICIN HCL [Suspect]
     Dosage: CYCLE 1
     Route: 042
  13. PACLITAXEL [Suspect]
     Dosage: CYCLE 4
     Route: 065
  14. PACLITAXEL [Suspect]
     Dosage: CYCLE 2
     Route: 065
  15. DOCETAXEL [Suspect]
     Dosage: CYCLE 5
     Route: 065
  16. PACLITAXEL [Suspect]
     Dosage: CYCLE 6
     Route: 065
  17. PACLITAXEL [Suspect]
     Dosage: CYCLE 5
     Route: 065
  18. PACLITAXEL [Suspect]
     Dosage: CYCLE 1
     Route: 065
  19. DOCETAXEL [Suspect]
     Dosage: CYCLE 8
     Route: 065
  20. DOXORUBICIN HCL [Suspect]
     Dosage: CYCLE 7
     Route: 042
  21. PACLITAXEL [Suspect]
     Dosage: CYCLE 7
     Route: 065
  22. DOCETAXEL [Suspect]
     Dosage: CYCLE 6
     Route: 065
  23. DOCETAXEL [Suspect]
     Dosage: CYCLE 7
     Route: 065
  24. DOCETAXEL [Suspect]
     Dosage: CYCLE 3
     Route: 065

REACTIONS (4)
  - CARDIOTOXICITY [None]
  - ARRHYTHMIA [None]
  - ELECTROCARDIOGRAM QT PROLONGED [None]
  - EJECTION FRACTION DECREASED [None]
